FAERS Safety Report 4267200-5 (Version None)
Quarter: 2004Q1

REPORT INFORMATION
  Report Type: 
  Country: None (occurrence: None)
  Receive Date: 20040108
  Receipt Date: 20040108
  Transmission Date: 20041129
  Serious: Yes (Life-Threatening, Hospitalization)
  Sender: FDA-Public Use
  Company Number: None

PATIENT
  Sex: Female
  Weight: 79.3795 kg

DRUGS (4)
  1. TOPOTECAN 4MG/M2 Q WK X 3 EVERY 28 DAYS [Suspect]
     Indication: NEOPLASM RECURRENCE
     Dosage: 6.5 MG Q WK X 3
     Dates: start: 20031226
  2. TOPOTECAN 4MG/M2 Q WK X 3 EVERY 28 DAYS [Suspect]
     Indication: OVARIAN CANCER
     Dosage: 6.5 MG Q WK X 3
     Dates: start: 20031226
  3. NEUMEGA [Suspect]
     Indication: THROMBOCYTOPENIA
     Dosage: 4000 MCG SQ X 5 DAYS
     Route: 058
     Dates: start: 20031227
  4. NEUPOGEN [Suspect]
     Dosage: 480 MCG QD X 4 DAYS
     Route: 058
     Dates: start: 20031227, end: 20031228

REACTIONS (5)
  - ANAEMIA [None]
  - AV DISSOCIATION [None]
  - NEUTROPENIA [None]
  - SYNCOPE [None]
  - THROMBOCYTOPENIA [None]
